FAERS Safety Report 16463220 (Version 1)
Quarter: 2019Q2

REPORT INFORMATION
  Report Type: Spontaneous
  Country: US (occurrence: US)
  Receive Date: 20190621
  Receipt Date: 20190621
  Transmission Date: 20190711
  Serious: No
  Sender: FDA-Public Use
  Company Number: US-PFIZER INC-2019261398

PATIENT
  Age: 69 Year
  Sex: Female
  Weight: 81.19 kg

DRUGS (1)
  1. ADVIL LIQUI-GELS [Suspect]
     Active Substance: IBUPROFEN
     Indication: ARTHRALGIA
     Dosage: UNK, AS NEEDED
     Dates: end: 20190615

REACTIONS (3)
  - Mouth swelling [Unknown]
  - Lip oedema [Unknown]
  - Oral discomfort [Unknown]
